FAERS Safety Report 8547791-6 (Version None)
Quarter: 2012Q3

REPORT INFORMATION
  Report Type: 
  Country: None (occurrence: None)
  Receive Date: 20120727
  Receipt Date: 20120116
  Transmission Date: 20120928
  Serious: Yes (Hospitalization)
  Sender: FDA-Public Use
  Company Number: US-ASTRAZENECA-2012SE03280

PATIENT
  Age: 36 Year
  Sex: Female

DRUGS (6)
  1. TRAZODONE HCL [Concomitant]
  2. KLONOPIN [Concomitant]
     Indication: ANXIETY
  3. WELLBUTRIN [Concomitant]
     Indication: DEPRESSION
  4. SEROQUEL [Suspect]
     Indication: DEPRESSION
     Route: 048
  5. ADIVAN [Concomitant]
     Indication: ANXIETY
  6. ANATRIPTILINE [Concomitant]
     Indication: DEPRESSION

REACTIONS (4)
  - DRUG INEFFECTIVE [None]
  - ANXIETY [None]
  - SUICIDAL IDEATION [None]
  - DEPRESSION [None]
